FAERS Safety Report 5533400-7 (Version None)
Quarter: 2007Q4

REPORT INFORMATION
  Report Type: 
  Country: None (occurrence: None)
  Receive Date: 20071204
  Receipt Date: 20071123
  Transmission Date: 20080405
  Serious: Yes (Other)
  Sender: FDA-Public Use
  Company Number: FR-JNJFOC-20071109954

PATIENT
  Age: 14 Year
  Sex: Male
  Weight: 78 kg

DRUGS (3)
  1. REMICADE [Suspect]
     Indication: CROHN'S DISEASE
     Route: 042
  2. IMUREL [Concomitant]
     Indication: CROHN'S DISEASE
     Route: 048
  3. PREDNISONE TAB [Concomitant]
     Indication: CROHN'S DISEASE
     Route: 048

REACTIONS (1)
  - WEIGHT INCREASED [None]
